FAERS Safety Report 7031037-4 (Version None)
Quarter: 2010Q4

REPORT INFORMATION
  Report Type: 
  Country: None (occurrence: None)
  Receive Date: 20101001
  Receipt Date: 20100924
  Transmission Date: 20110411
  Serious: Yes (Other)
  Sender: FDA-Public Use
  Company Number: IMP_05102_2010

PATIENT
  Sex: Male

DRUGS (3)
  1. FENOFIBRATE [Suspect]
     Indication: BLOOD CHOLESTEROL INCREASED
     Dosage: 1 DF BID DF
     Dates: start: 20100903
  2. GLUCOPHAGE [Concomitant]
  3. PLAVIX [Concomitant]

REACTIONS (1)
  - ANAPHYLACTIC REACTION [None]
